FAERS Safety Report 4332476-2 (Version None)
Quarter: 2004Q2

REPORT INFORMATION
  Report Type: 
  Country: None (occurrence: None)
  Receive Date: 20040401
  Receipt Date: 20040325
  Transmission Date: 20050107
  Serious: Yes (Other)
  Sender: FDA-Public Use
  Company Number: 805#1#2004-00004

PATIENT
  Age: 1 Month
  Sex: Male

DRUGS (5)
  1. ALPROSTADIL [Suspect]
     Indication: HYPOPLASTIC LEFT HEART SYNDROME
     Dosage: INTRAVENOUS DRIP
     Route: 041
  2. DOPAMINE HCL [Concomitant]
  3. MIDAZOLAM HCL [Concomitant]
  4. DOUBTAMINE-HYDROCHLORIDE (DOUTAMINE HYDROCHLORIDE) [Concomitant]
  5. FUROSEMIDE [Concomitant]

REACTIONS (3)
  - GASTRIC MUCOSAL HYPERTROPHY [None]
  - HYPOTENSION [None]
  - PERIOSTITIS [None]
